FAERS Safety Report 21119442 (Version 1)
Quarter: 2022Q3

REPORT INFORMATION
  Report Type: Spontaneous
  Country: US (occurrence: US)
  Receive Date: 20220722
  Receipt Date: 20220722
  Transmission Date: 20221027
  Serious: No
  Sender: FDA-Public Use
  Company Number: US-FreseniusKabi-FK202210013

PATIENT
  Sex: Female

DRUGS (2)
  1. FULVESTRANT [Suspect]
     Active Substance: FULVESTRANT
     Indication: Product used for unknown indication
  2. FULVESTRANT [Suspect]
     Active Substance: FULVESTRANT

REACTIONS (5)
  - Nausea [Unknown]
  - Vomiting [Unknown]
  - Pruritus [Unknown]
  - Swelling [Unknown]
  - Incorrect drug administration rate [Unknown]
